FAERS Safety Report 10181864 (Version 1)
Quarter: 2014Q2

REPORT INFORMATION
  Report Type: Spontaneous
  Country: US (occurrence: US)
  Receive Date: 20140519
  Receipt Date: 20140519
  Transmission Date: 20141212
  Serious: No
  Sender: FDA-Public Use
  Company Number: US-ASTRAZENECA-2014SE18498

PATIENT
  Age: 60 Year
  Sex: Female
  Weight: 86.2 kg

DRUGS (2)
  1. ATACAND [Suspect]
     Indication: HYPERTENSION
     Route: 048
     Dates: start: 2004
  2. CATAPRESS [Concomitant]
     Indication: HYPERTENSION

REACTIONS (7)
  - Sinusitis [Unknown]
  - Respiratory tract infection [Unknown]
  - Blood urine present [Unknown]
  - Hypertension [Unknown]
  - Urinary tract infection [Unknown]
  - Urinary retention [Unknown]
  - Drug ineffective [Unknown]
